FAERS Safety Report 15916316 (Version 3)
Quarter: 2019Q2

REPORT INFORMATION
  Report Type: Spontaneous
  Country: US (occurrence: US)
  Receive Date: 20190204
  Receipt Date: 20190404
  Transmission Date: 20190711
  Serious: Yes (Other)
  Sender: FDA-Public Use
  Company Number: US-ASTRAZENECA-2018SF21040

PATIENT
  Age: 67 Year
  Sex: Female
  Weight: 89.8 kg

DRUGS (40)
  1. SYNTHROID [Concomitant]
     Active Substance: LEVOTHYROXINE SODIUM
     Dates: start: 20111205
  2. NITROSTAT [Concomitant]
     Active Substance: NITROGLYCERIN
  3. MIRALAX [Concomitant]
     Active Substance: POLYETHYLENE GLYCOL 3350
  4. ALDACTONE [Concomitant]
     Active Substance: SPIRONOLACTONE
  5. SPIRONOLACTONE. [Concomitant]
     Active Substance: SPIRONOLACTONE
     Dates: start: 20111107
  6. TEKTURNA [Concomitant]
     Active Substance: ALISKIREN HEMIFUMARATE
     Dates: start: 20120124
  7. ACETAMINOPHEN. [Concomitant]
     Active Substance: ACETAMINOPHEN
  8. DESYREL [Concomitant]
     Active Substance: TRAZODONE HYDROCHLORIDE
  9. NEXIUM [Suspect]
     Active Substance: ESOMEPRAZOLE MAGNESIUM
     Route: 048
     Dates: start: 2002, end: 2016
  10. LIALDA [Concomitant]
     Active Substance: MESALAMINE
     Dates: start: 20111107
  11. ALLOPURINOL. [Concomitant]
     Active Substance: ALLOPURINOL
     Dates: start: 20111114
  12. FLUTICASONE PROPIONATE. [Concomitant]
     Active Substance: FLUTICASONE PROPIONATE
     Dates: start: 20111119
  13. AMOXICILLIN. [Concomitant]
     Active Substance: AMOXICILLIN
     Dates: start: 20111208
  14. KLOR-CON [Concomitant]
     Active Substance: POTASSIUM CHLORIDE
  15. CLONIDINE. [Concomitant]
     Active Substance: CLONIDINE
     Dates: start: 20111130
  16. METOCLOPRAMIDE HYDROCHLORIDE. [Concomitant]
     Active Substance: METOCLOPRAMIDE HYDROCHLORIDE
     Dates: start: 20120117
  17. POTASSIUM CHLORIDE. [Concomitant]
     Active Substance: POTASSIUM CHLORIDE
     Dates: start: 20120124
  18. REGLAN [Concomitant]
     Active Substance: METOCLOPRAMIDE HYDROCHLORIDE
     Dates: start: 20120401
  19. ENTOCORT [Concomitant]
     Active Substance: BUDESONIDE
  20. VALIUM [Concomitant]
     Active Substance: DIAZEPAM
  21. ZESTRIL [Concomitant]
     Active Substance: LISINOPRIL
  22. CARVEDILOL. [Concomitant]
     Active Substance: CARVEDILOL
     Dates: start: 20111107
  23. METANX [Concomitant]
     Active Substance: LEVOMEFOLATE CALCIUM\METHYLCOBALAMIN\PYRIDOXAL PHOSPHATE ANHYDROUS
     Dates: start: 20111107
  24. HYDROCODONE-ACETAMINOPHEN [Concomitant]
     Active Substance: ACETAMINOPHEN\HYDROCODONE
     Dates: start: 20111116
  25. QUETIAPINE FUMARATE. [Concomitant]
     Active Substance: QUETIAPINE FUMARATE
     Dates: start: 20120404
  26. SEROQUEL [Concomitant]
     Active Substance: QUETIAPINE FUMARATE
  27. PRILOSEC [Suspect]
     Active Substance: OMEPRAZOLE MAGNESIUM
     Route: 048
  28. AMOX TR-POTASSIUM CLAVULANATE [Concomitant]
     Dates: start: 20120209
  29. FLONASE [Concomitant]
     Active Substance: FLUTICASONE PROPIONATE
  30. SINGULAIR [Concomitant]
     Active Substance: MONTELUKAST SODIUM
  31. AMLODIPINE BESYLATE. [Concomitant]
     Active Substance: AMLODIPINE BESYLATE
     Dates: start: 20111107
  32. DIAZEPAM. [Concomitant]
     Active Substance: DIAZEPAM
     Dates: start: 20111226
  33. FUROSEMIDE. [Concomitant]
     Active Substance: FUROSEMIDE
     Dates: start: 20120124
  34. DILTIAZEM. [Concomitant]
     Active Substance: DILTIAZEM
     Dosage: 24HR ER
     Dates: start: 20120404
  35. LASIX [Concomitant]
     Active Substance: FUROSEMIDE
  36. TOPROL XL [Concomitant]
     Active Substance: METOPROLOL SUCCINATE
  37. CARAFATE [Concomitant]
     Active Substance: SUCRALFATE
  38. NEXIUM [Suspect]
     Active Substance: ESOMEPRAZOLE MAGNESIUM
     Route: 048
     Dates: start: 20120124
  39. CHLORTHALIDONE. [Concomitant]
     Active Substance: CHLORTHALIDONE
     Dates: start: 20120124
  40. ASPIRIN. [Concomitant]
     Active Substance: ASPIRIN

REACTIONS (4)
  - Chronic kidney disease [Not Recovered/Not Resolved]
  - Renal failure [Unknown]
  - Acute kidney injury [Unknown]
  - Cardiorenal syndrome [Unknown]

NARRATIVE: CASE EVENT DATE: 2010
